FAERS Safety Report 7734827-5 (Version None)
Quarter: 2011Q3

REPORT INFORMATION
  Report Type: 
  Country: None (occurrence: None)
  Receive Date: 20110907
  Receipt Date: 20110829
  Transmission Date: 20111222
  Serious: Yes (Death)
  Sender: FDA-Public Use
  Company Number: US-MUTUAL PHARMACEUTICAL COMPANY, INC.-MTCD20110019

PATIENT
  Sex: Male

DRUGS (2)
  1. REGLAN [Suspect]
     Indication: PRODUCT USED FOR UNKNOWN INDICATION
     Route: 048
     Dates: start: 19930101, end: 20001201
  2. METOCLOPRAMIDE [Suspect]
     Indication: PRODUCT USED FOR UNKNOWN INDICATION
     Route: 048
     Dates: start: 19930101, end: 20001201

REACTIONS (3)
  - EXTRAPYRAMIDAL DISORDER [None]
  - DEATH [None]
  - TARDIVE DYSKINESIA [None]
